FAERS Safety Report 13262324 (Version 3)
Quarter: 2017Q1

REPORT INFORMATION
  Report Type: Spontaneous
  Country: US (occurrence: US)
  Receive Date: 20170223
  Receipt Date: 20170331
  Transmission Date: 20170428
  Serious: Yes (Other)
  Sender: FDA-Public Use
  Company Number: US-009507513-1702USA008820

PATIENT

DRUGS (4)
  1. DULERA [Suspect]
     Active Substance: FORMOTEROL FUMARATE DIHYDRATE\MOMETASONE FUROATE
     Indication: ASTHMA
     Dosage: 800 MICROGRAM/DAY
     Route: 055
  2. FLUTICASONE PROPIONATE (+) SALMETEROL XINAFOATE [Suspect]
     Active Substance: FLUTICASONE PROPIONATE\SALMETEROL XINAFOATE
     Indication: ASTHMA
     Dosage: 460 MICROGRAM/DAY
     Route: 055
  3. FLUTICASONE PROPIONATE (+) SALMETEROL XINAFOATE [Suspect]
     Active Substance: FLUTICASONE PROPIONATE\SALMETEROL XINAFOATE
     Dosage: 920 MICROGRAM/DAY
     Route: 055
  4. FLUTICASONE. [Suspect]
     Active Substance: FLUTICASONE
     Indication: ASTHMA
     Dosage: 176-440 MICROGRAM/DAY
     Route: 055

REACTIONS (2)
  - Adrenal suppression [Recovered/Resolved]
  - Growth retardation [Recovered/Resolved]
